FAERS Safety Report 6483833-X (Version None)
Quarter: 2009Q4

REPORT INFORMATION
  Report Type: 
  Country: None (occurrence: None)
  Receive Date: 20091209
  Receipt Date: 20091130
  Transmission Date: 20100525
  Serious: Yes (Hospitalization)
  Sender: FDA-Public Use
  Company Number: US-ASTRAZENECA-2009SE29452

PATIENT
  Sex: Female

DRUGS (1)
  1. SYMBICORT [Suspect]
     Dosage: TOTAL DAILY DOSE 160 MCG
     Route: 055

REACTIONS (2)
  - H1N1 INFLUENZA [None]
  - PNEUMONIA [None]
